FAERS Safety Report 9714263 (Version 3)
Quarter: 2015Q3

REPORT INFORMATION
  Report Type: Spontaneous
  Country: US (occurrence: US)
  Receive Date: 20131126
  Receipt Date: 20150803
  Transmission Date: 20151125
  Serious: No
  Sender: FDA-Public Use
  Company Number: US-GILEAD-2008-0018647

PATIENT
  Age: 44 Year
  Sex: Female
  Weight: 92.99 kg

DRUGS (9)
  1. REVATIO [Concomitant]
     Active Substance: SILDENAFIL CITRATE
  2. WARFARIN [Concomitant]
     Active Substance: WARFARIN
  3. ALBUTEROL. [Concomitant]
     Active Substance: ALBUTEROL
  4. K-DUR [Concomitant]
     Active Substance: POTASSIUM CHLORIDE
  5. FLOLAN [Concomitant]
     Active Substance: EPOPROSTENOL SODIUM
  6. LIPITOR [Concomitant]
     Active Substance: ATORVASTATIN CALCIUM
  7. LASIX [Concomitant]
     Active Substance: FUROSEMIDE
  8. LETAIRIS [Suspect]
     Active Substance: AMBRISENTAN
     Indication: PULMONARY ARTERIAL HYPERTENSION
     Route: 048
     Dates: start: 20080929
  9. DETROL LA [Concomitant]
     Active Substance: TOLTERODINE TARTRATE

REACTIONS (4)
  - Peripheral swelling [Not Recovered/Not Resolved]
  - Nasal congestion [Unknown]
  - Abdominal distension [Not Recovered/Not Resolved]
  - Headache [Unknown]

NARRATIVE: CASE EVENT DATE: 20081015
